FAERS Safety Report 4775330-4 (Version None)
Quarter: 2005Q3

REPORT INFORMATION
  Report Type: 
  Country: None (occurrence: None)
  Receive Date: 20050922
  Receipt Date: 20050913
  Transmission Date: 20060218
  Serious: Yes (Life-Threatening, Hospitalization)
  Sender: FDA-Public Use
  Company Number: GB-BOEHRINGER INGELHEIM PHARMACEUTICALS, INC.-2005-UK-01740UK

PATIENT
  Age: 74 Year
  Sex: Male

DRUGS (2)
  1. MOBIC [Suspect]
     Indication: OSTEOARTHRITIS
     Dosage: 7.5 MG DAILY
     Dates: start: 20040301
  2. MOBIC [Suspect]
     Dosage: 15 MG DAILY
     Dates: start: 20050201

REACTIONS (2)
  - LARGE INTESTINAL ULCER [None]
  - RECTAL HAEMORRHAGE [None]
